FAERS Safety Report 10723661 (Version 2)
Quarter: 2015Q1

REPORT INFORMATION
  Report Type: Spontaneous
  Country: CA (occurrence: None)
  Receive Date: 20150115
  Receipt Date: 20150202
  Transmission Date: 20150721
  Serious: Yes (Other)
  Sender: FDA-Public Use
  Company Number: 20150006

PATIENT
  Age: 42 Year
  Sex: Female

DRUGS (5)
  1. MEDROXY [Concomitant]
  2. TECTA (PANTOPRAZOLE) [Concomitant]
  3. ORAL IRON [Concomitant]
  4. DEXIRON (IRON DEXTRAN INJECTION, USP) (0134C) (IRON DEXTRAN) 50 MG/ML FE+++ [Suspect]
     Active Substance: IRON DEXTRAN
     Indication: BLOOD IRON DECREASED
     Dosage: 25 MG IN 50 ML NSS, INTRAVENOUS
     Route: 042
     Dates: start: 20141124, end: 20141124
  5. EFFEXOR [Concomitant]
     Active Substance: VENLAFAXINE HYDROCHLORIDE

REACTIONS (6)
  - Back pain [None]
  - Feeling abnormal [None]
  - Blood pressure increased [None]
  - Infusion related reaction [None]
  - Hypersensitivity [None]
  - Flushing [None]

NARRATIVE: CASE EVENT DATE: 20141124
